FAERS Safety Report 6163824-9 (Version None)
Quarter: 2009Q2

REPORT INFORMATION
  Report Type: 
  Country: None (occurrence: None)
  Receive Date: 20090422
  Receipt Date: 20071010
  Transmission Date: 20091009
  Serious: Yes (Hospitalization)
  Sender: FDA-Public Use
  Company Number: AU-SOLVAY-00307034470

PATIENT
  Age: 31 Month
  Sex: Female

DRUGS (1)
  1. TESTOSTERONE [Suspect]
     Indication: ILL-DEFINED DISORDER
     Dosage: DAILY DOSE:  UNKNOWN
     Route: 062

REACTIONS (4)
  - ACCIDENTAL EXPOSURE [None]
  - ENLARGED CLITORIS [None]
  - HIRSUTISM [None]
  - VIRILISM [None]
